FAERS Safety Report 8863079 (Version 4)
Quarter: 2012Q4

REPORT INFORMATION
  Report Type: 
  Country: GR (occurrence: GR)
  Receive Date: 20121023
  Receipt Date: 20121129
  Transmission Date: 20130627
  Serious: Yes (Other)
  Sender: FDA-Public Use
  Company Number: PHHY2012GR088614

PATIENT
  Age: 40 Year
  Sex: Female

DRUGS (3)
  1. DESFERAL [Suspect]
  2. DESFERAL [Suspect]
     Dates: start: 20121018
  3. FILICINE [Concomitant]

REACTIONS (3)
  - Arthritis [Recovered/Resolved]
  - Injection site inflammation [Recovered/Resolved]
  - Pyrexia [Recovered/Resolved]
